FAERS Safety Report 10211362 (Version 2)
Quarter: 2014Q2

REPORT INFORMATION
  Report Type: Spontaneous
  Country: US (occurrence: US)
  Receive Date: 20140602
  Receipt Date: 20140630
  Transmission Date: 20141212
  Serious: Yes (Hospitalization, Other)
  Sender: FDA-Public Use
  Company Number: US-JNJFOC-20140518274

PATIENT
  Sex: Male

DRUGS (2)
  1. OLYSIO [Suspect]
     Indication: HEPATITIS C
     Route: 065
  2. SOVALDI [Suspect]
     Indication: HEPATITIS C
     Route: 065

REACTIONS (4)
  - Hyperbilirubinaemia [Unknown]
  - Cholelithiasis [Unknown]
  - Cholecystectomy [Unknown]
  - Off label use [Unknown]
